FAERS Safety Report 5931872-7 (Version None)
Quarter: 2008Q4

REPORT INFORMATION
  Report Type: 
  Country: None (occurrence: None)
  Receive Date: 20081027
  Receipt Date: 20081015
  Transmission Date: 20090506
  Serious: Yes (Other)
  Sender: FDA-Public Use
  Company Number: US-PFIZER INC-2008085531

PATIENT
  Sex: Female
  Weight: 50.8 kg

DRUGS (4)
  1. FLAGYL [Suspect]
     Indication: DIARRHOEA
     Dates: start: 20081001
  2. CLEOCIN HYDROCHLORIDE [Suspect]
     Indication: PROPHYLAXIS
     Dates: start: 20050905, end: 20080911
  3. CIPROFLOXACIN [Suspect]
     Indication: URINARY TRACT INFECTION
  4. PERCOCET [Concomitant]

REACTIONS (8)
  - ABDOMINAL PAIN [None]
  - DIARRHOEA [None]
  - FAECES DISCOLOURED [None]
  - FREQUENT BOWEL MOVEMENTS [None]
  - HAEMATOCHEZIA [None]
  - NAUSEA [None]
  - PSEUDOMEMBRANOUS COLITIS [None]
  - URINARY TRACT INFECTION [None]
